FAERS Safety Report 10160332 (Version 2)
Quarter: 2014Q2

REPORT INFORMATION
  Report Type: Spontaneous
  Country: US (occurrence: US)
  Receive Date: 20140508
  Receipt Date: 20140620
  Transmission Date: 20141212
  Serious: Yes (Hospitalization)
  Sender: FDA-Public Use
  Company Number: US-GLAXOSMITHKLINE-A1071748A

PATIENT
  Age: 46 Year
  Sex: Female

DRUGS (5)
  1. LAMICTAL [Suspect]
     Indication: BIPOLAR DISORDER
     Dosage: 150MG PER DAY
     Route: 048
     Dates: start: 2003
  2. TRAZODONE [Concomitant]
  3. XANAX [Concomitant]
  4. NUCYNTA [Concomitant]
  5. BENICAR [Concomitant]

REACTIONS (2)
  - Transient ischaemic attack [Not Recovered/Not Resolved]
  - Malaise [Unknown]
